FAERS Safety Report 25423594 (Version 1)
Quarter: 2025Q2

REPORT INFORMATION
  Report Type: Spontaneous
  Country: CN (occurrence: CN)
  Receive Date: 20250611
  Receipt Date: 20250611
  Transmission Date: 20250717
  Serious: Yes (Hospitalization, Other)
  Sender: Haleon PLC
  Company Number: CN-HALEON-2245956

PATIENT
  Age: 84 Year
  Sex: Female
  Weight: 46 kg

DRUGS (1)
  1. DICLOFENAC SODIUM [Suspect]
     Active Substance: DICLOFENAC SODIUM
     Indication: Pain in extremity
     Route: 048
     Dates: start: 20250506, end: 20250506

REACTIONS (8)
  - Coma [Recovering/Resolving]
  - Dysarthria [Recovering/Resolving]
  - Abdominal pain lower [Recovered/Resolved]
  - Movement disorder [Recovering/Resolving]
  - Toxicity to various agents [Recovered/Resolved]
  - Hyporesponsive to stimuli [Recovering/Resolving]
  - Abdominal pain upper [Recovered/Resolved]
  - Inappropriate schedule of product administration [Unknown]

NARRATIVE: CASE EVENT DATE: 20250506
